FAERS Safety Report 25816405 (Version 1)
Quarter: 2025Q3

REPORT INFORMATION
  Report Type: Spontaneous
  Country: US (occurrence: US)
  Receive Date: 20250918
  Receipt Date: 20250918
  Transmission Date: 20251020
  Serious: No
  Sender: AUROBINDO
  Company Number: US-AUROBINDO-AUR-APL-2025-023614

PATIENT
  Age: 73 Year
  Sex: Female

DRUGS (1)
  1. ALENDRONATE SODIUM [Suspect]
     Active Substance: ALENDRONATE SODIUM
     Indication: Osteopenia
     Dosage: 70 MILLIGRAM, EVERY WEEK
     Route: 048
     Dates: start: 20250401, end: 20250416

REACTIONS (10)
  - Influenza like illness [Unknown]
  - Nausea [Unknown]
  - Fatigue [Unknown]
  - Malaise [Unknown]
  - Body temperature [Unknown]
  - Palpitations [Unknown]
  - Dyspnoea [Unknown]
  - Pruritus [Unknown]
  - Dyspepsia [Unknown]
  - Condition aggravated [Unknown]

NARRATIVE: CASE EVENT DATE: 20250402
